FAERS Safety Report 10477250 (Version 2)
Quarter: 2014Q4

REPORT INFORMATION
  Report Type: Spontaneous
  Country: US (occurrence: US)
  Receive Date: 20140926
  Receipt Date: 20141105
  Transmission Date: 20150528
  Serious: No
  Sender: FDA-Public Use
  Company Number: US-009507513-1409USA006722

PATIENT
  Age: 64 Year
  Sex: Female

DRUGS (6)
  1. ZETSIM [Concomitant]
     Active Substance: EZETIMIBE\SIMVASTATIN
  2. LOPID [Concomitant]
     Active Substance: GEMFIBROZIL
  3. LIPITOR [Concomitant]
     Active Substance: ATORVASTATIN CALCIUM
  4. NIACIN. [Concomitant]
     Active Substance: NIACIN
  5. VYTORIN [Suspect]
     Active Substance: EZETIMIBE\SIMVASTATIN
     Indication: BLOOD CHOLESTEROL INCREASED
     Dosage: 10/40 MG ONCE DAILY
     Route: 048
     Dates: start: 201312, end: 20140815
  6. SIMVASTATIN TABLETS, USP [Concomitant]
     Active Substance: SIMVASTATIN

REACTIONS (4)
  - Feeling abnormal [Recovering/Resolving]
  - Discomfort [Unknown]
  - Muscle spasms [Recovered/Resolved]
  - Abdominal pain upper [Recovering/Resolving]

NARRATIVE: CASE EVENT DATE: 2014
